FAERS Safety Report 7026165-3 (Version None)
Quarter: 2010Q4

REPORT INFORMATION
  Report Type: 
  Country: None (occurrence: None)
  Receive Date: 20101004
  Receipt Date: 20100930
  Transmission Date: 20110411
  Serious: No
  Sender: FDA-Public Use
  Company Number: US-BIOGENIDEC-2010BI033831

PATIENT
  Age: 19 Year
  Sex: Female

DRUGS (1)
  1. AVONEX [Suspect]
     Indication: MULTIPLE SCLEROSIS
     Route: 030
     Dates: start: 20100305

REACTIONS (4)
  - CENTRAL NERVOUS SYSTEM LESION [None]
  - INJECTION SITE HAEMATOMA [None]
  - LHERMITTE'S SIGN [None]
  - NEUROLOGICAL EXAMINATION ABNORMAL [None]
